FAERS Safety Report 4766904-5 (Version None)
Quarter: 2005Q3

REPORT INFORMATION
  Report Type: 
  Country: None (occurrence: None)
  Receive Date: 20050909
  Receipt Date: 20050406
  Transmission Date: 20060218
  Serious: Yes (Other)
  Sender: FDA-Public Use
  Company Number: 2005055786

PATIENT
  Sex: 0

DRUGS (2)
  1. GEMFIBROZIL [Suspect]
     Indication: ILL-DEFINED DISORDER
  2. LIPITOR [Suspect]
     Indication: ILL-DEFINED DISORDER
     Dosage: (40 MG, UNKNOWN)

REACTIONS (1)
  - RHABDOMYOLYSIS [None]
